FAERS Safety Report 6980977-0 (Version None)
Quarter: 2010Q3

REPORT INFORMATION
  Report Type: 
  Country: None (occurrence: None)
  Receive Date: 20100914
  Receipt Date: 20100903
  Transmission Date: 20110219
  Serious: Yes (Hospitalization)
  Sender: FDA-Public Use
  Company Number: A0880959A

PATIENT
  Age: 46 Year
  Sex: Male

DRUGS (3)
  1. AVANDIA [Suspect]
     Dates: start: 20030301, end: 20070401
  2. AVANDAMET [Suspect]
     Dosage: 1TAB PER DAY
     Dates: start: 20041101, end: 20080401
  3. AVANDARYL [Suspect]
     Dosage: 1TAB PER DAY
     Dates: start: 20070401, end: 20071101

REACTIONS (1)
  - CORONARY ARTERY OCCLUSION [None]
